FAERS Safety Report 6091626-0 (Version None)
Quarter: 2009Q1

REPORT INFORMATION
  Report Type: 
  Country: None (occurrence: None)
  Receive Date: 20090225
  Receipt Date: 20080307
  Transmission Date: 20090719
  Serious: No
  Sender: FDA-Public Use
  Company Number: A0714077A

PATIENT
  Age: 68 Year
  Sex: Male

DRUGS (5)
  1. VALTREX [Suspect]
     Dosage: 1G THREE TIMES PER DAY
     Route: 048
     Dates: start: 20080305
  2. CIPRO [Concomitant]
  3. MESTINON [Concomitant]
  4. IMURAN [Concomitant]
  5. PROSCAR [Concomitant]

REACTIONS (1)
  - DYSPNOEA [None]
